FAERS Safety Report 4830614-6 (Version None)
Quarter: 2005Q4

REPORT INFORMATION
  Report Type: 
  Country: None (occurrence: None)
  Receive Date: 20051115
  Receipt Date: 20051104
  Transmission Date: 20060501
  Serious: Yes (Death)
  Sender: FDA-Public Use
  Company Number: HQWYE428404NOV05

PATIENT
  Age: 69 Year
  Sex: Male

DRUGS (13)
  1. CORDARONE [Suspect]
     Dosage: 200 MG 1X PER 1 DAY ORAL
     Route: 048
     Dates: start: 20050201, end: 20050803
  2. SULFASALAZINE [Concomitant]
  3. SERETIDE (SALMETEROL/FLUTICASONE) [Concomitant]
  4. ASPIRIN [Concomitant]
  5. DILTIAZEM [Concomitant]
  6. SIMVASTATIN [Concomitant]
  7. LEVOTHYROXINE SODIUM [Concomitant]
  8. DESLORATADINE (DESLORATADINE) [Concomitant]
  9. LANSOPRAZOLE [Concomitant]
  10. ISOSORBIDE MONONITRATE [Concomitant]
  11. NAPROXEN [Concomitant]
  12. WARFARIN SODIUM [Concomitant]
  13. ACTONEL [Concomitant]

REACTIONS (3)
  - GENERAL PHYSICAL HEALTH DETERIORATION [None]
  - LOWER RESPIRATORY TRACT INFECTION [None]
  - PNEUMONITIS [None]
